FAERS Safety Report 23060949 (Version 10)
Quarter: 2024Q2

REPORT INFORMATION
  Report Type: Report from Study
  Country: US (occurrence: US)
  Receive Date: 20231012
  Receipt Date: 20240618
  Transmission Date: 20240716
  Serious: Yes (Other)
  Sender: FDA-Public Use
  Company Number: US-ACADIA PHARMACEUTICALS INC.-ACA-2023-TRF-004210

PATIENT
  Age: 11 Year
  Sex: Female
  Weight: 45 kg

DRUGS (32)
  1. DAYBUE [Suspect]
     Active Substance: TROFINETIDE
     Indication: Rett syndrome
     Dosage: 35 MILLILITER, BID VIA G-TUBE
     Dates: start: 20230808
  2. DAYBUE [Suspect]
     Active Substance: TROFINETIDE
     Dosage: 30 MILLILITER BID, VIA G TUBE
     Dates: start: 20230920
  3. DAYBUE [Suspect]
     Active Substance: TROFINETIDE
     Dosage: 25 MILLILITER BID, VIA G TUBE
     Dates: start: 20231019
  4. DAYBUE [Suspect]
     Active Substance: TROFINETIDE
     Dosage: 50 MILLILITER BID, VIA G TUBE
  5. DAYBUE [Suspect]
     Active Substance: TROFINETIDE
     Dosage: 25 MILLILITER BID, VIA G TUBE
  6. DAYBUE [Suspect]
     Active Substance: TROFINETIDE
     Dosage: 30 MILLILITER, BID
  7. DAYBUE [Suspect]
     Active Substance: TROFINETIDE
     Dosage: INCREASED DAYBUE BY 5 ML
  8. DAYBUE [Suspect]
     Active Substance: TROFINETIDE
     Dosage: 35 MILLILITER, BID
     Dates: start: 20240209
  9. MIRALAX [Suspect]
     Active Substance: POLYETHYLENE GLYCOL 3350
  10. KLONOPIN [Concomitant]
     Active Substance: CLONAZEPAM
     Indication: Seizure cluster
     Dosage: 0.5 MG, 1 TAB IF NEEDED ONE AT ONSET AND ONE TABLET IF NEEDED, 2-4 HOURS LATER IF NEEDED
     Route: 048
  11. KEPPRA [Concomitant]
     Active Substance: LEVETIRACETAM
     Dosage: TAKE 13 ML BY MOUTH TID, 1,400 MG BY GASTRIC TUBE ROUTE 3 TIMES DAILY
     Route: 048
  12. KEPPRA [Concomitant]
     Active Substance: LEVETIRACETAM
     Dosage: 1400 MG, TID
  13. KEPPRA [Concomitant]
     Active Substance: LEVETIRACETAM
     Dosage: (100 MG/MI) 14 ML THREE TIMES A DAY
  14. TAURINE [Concomitant]
     Active Substance: TAURINE
     Dosage: 250 ML/5ML GIVE 5MIDAILY
  15. LAMICTAL [Concomitant]
     Active Substance: LAMOTRIGINE
     Dosage: 10 MG/ML, TAKE 15 ML BID
     Route: 048
  16. LAMICTAL [Concomitant]
     Active Substance: LAMOTRIGINE
     Dosage: (10 MG/M1) 17.5 ML TWICE A DAY
  17. ZONEGRAN [Concomitant]
     Active Substance: ZONISAMIDE
     Dosage: TAKE 1.5 ML (75 MG) IN AM; TAKE 6.5 ML (325 MG) IN PM
  18. DIASTAT [Concomitant]
     Active Substance: DIAZEPAM
     Indication: Seizure
     Dosage: 20 MILLIGRAM, ADMINISTER 1 SYRINGE ADMINISTER 1 SYRINGE ADMINISTER 1 SYRINGE
     Route: 054
  19. DIASTAT [Concomitant]
     Active Substance: DIAZEPAM
     Indication: Seizure cluster
  20. IMODIUM [Concomitant]
     Active Substance: LOPERAMIDE HYDROCHLORIDE
     Dosage: 1 MG/7.5 ML, 10 ML BID
     Route: 048
  21. VERSED [Concomitant]
     Active Substance: MIDAZOLAM HYDROCHLORIDE
     Indication: Seizure
     Dosage: 5 MG/ML, ADMINISTER 1 ML IN EACH NOSTRIL
     Route: 045
  22. PRILOSEC [Concomitant]
     Active Substance: OMEPRAZOLE MAGNESIUM
     Dosage: 20 MILLIGRAM, 1 CAPSULE DAILY
     Route: 048
  23. VITAMINS [Concomitant]
     Active Substance: VITAMINS
     Dosage: TAKE 1 CAPSULE BY MOUTH DAILY
     Route: 048
  24. MIRALAX [Concomitant]
     Active Substance: POLYETHYLENE GLYCOL 3350
     Dosage: 17 G, ONCE DAILY
     Route: 048
  25. SABRIL [Concomitant]
     Active Substance: VIGABATRIN
     Dosage: 1750 MG BID
  26. SABRIL [Concomitant]
     Active Substance: VIGABATRIN
     Dosage: 35 ML (1750 MG ) TWICE A DAY
  27. EPIDIOLEX [Concomitant]
     Active Substance: CANNABIDIOL
     Dosage: (100 MG/M1) 400 MG BID
  28. EPIDIOLEX [Concomitant]
     Active Substance: CANNABIDIOL
     Dosage: (100 MG/ML) 4 ML TWICE A DAY
  29. DEPAKOTE [Concomitant]
     Active Substance: DIVALPROEX SODIUM
  30. PHENOBARBITAL [Concomitant]
     Active Substance: PHENOBARBITAL
  31. ONFI [Concomitant]
     Active Substance: CLOBAZAM
  32. MELATONIN [Concomitant]
     Active Substance: MELATONIN
     Dosage: 3 MG, 1.5 MG 30 MINUTES BEFORE BEDTIME

REACTIONS (21)
  - Seizure [Not Recovered/Not Resolved]
  - Abdominal pain upper [Unknown]
  - Appetite disorder [Unknown]
  - Abdominal pain [Unknown]
  - Abdominal distension [Unknown]
  - Flatulence [Unknown]
  - Abdominal discomfort [Not Recovered/Not Resolved]
  - Abdominal discomfort [Not Recovered/Not Resolved]
  - Prescribed underdose [Not Recovered/Not Resolved]
  - Constipation [Not Recovered/Not Resolved]
  - Underdose [Not Recovered/Not Resolved]
  - Medical device change [Not Recovered/Not Resolved]
  - Decreased appetite [Not Recovered/Not Resolved]
  - Diarrhoea [Not Recovered/Not Resolved]
  - Diarrhoea [Recovered/Resolved]
  - Diarrhoea [Not Recovered/Not Resolved]
  - Diarrhoea [Recovering/Resolving]
  - Diarrhoea [Not Recovered/Not Resolved]
  - Diarrhoea [Unknown]
  - Vomiting [Unknown]
  - Vomiting [Recovered/Resolved]

NARRATIVE: CASE EVENT DATE: 20230916
